FAERS Safety Report 12694145 (Version 3)
Quarter: 2016Q4

REPORT INFORMATION
  Report Type: Spontaneous
  Country: US (occurrence: US)
  Receive Date: 20160829
  Receipt Date: 20161111
  Transmission Date: 20170207
  Serious: No
  Sender: FDA-Public Use
  Company Number: US-PFIZER INC-2016402457

PATIENT
  Age: 48 Year
  Sex: Male
  Weight: 90.7 kg

DRUGS (3)
  1. HYDROCODONE [Concomitant]
     Active Substance: HYDROCODONE
     Dosage: 10 MG, 4X/DAY (10/325 4X A DAY, 2 PILLS IN MORNING AND 2 IN EVENING )
     Dates: start: 2003
  2. LYRICA [Suspect]
     Active Substance: PREGABALIN
     Indication: PAIN IN EXTREMITY
     Dosage: 150 MG, 3X/DAY
     Dates: start: 2008
  3. FENTANYL. [Concomitant]
     Active Substance: FENTANYL
     Dosage: 50 MG, UNK (EVERY 3 DAYS)

REACTIONS (1)
  - Drug ineffective [Unknown]
